FAERS Safety Report 10568954 (Version 2)
Quarter: 2014Q4

REPORT INFORMATION
  Report Type: Spontaneous
  Country: SK (occurrence: SK)
  Receive Date: 20141106
  Receipt Date: 20141230
  Transmission Date: 20150529
  Serious: Yes (Other)
  Sender: FDA-Public Use
  Company Number: SK-GLAXOSMITHKLINE-SK2014GSK009936

PATIENT
  Age: 21 Year
  Sex: Female

DRUGS (4)
  1. REVOLADE [Suspect]
     Active Substance: ELTROMBOPAG
     Dosage: 25 UG, BID
     Dates: start: 20141005
  2. REVOLADE [Suspect]
     Active Substance: ELTROMBOPAG
     Dosage: 25 UG, TID
     Dates: start: 20141002, end: 20141004
  3. REVOLADE [Suspect]
     Active Substance: ELTROMBOPAG
     Indication: IMMUNE THROMBOCYTOPENIC PURPURA
     Dosage: 25 UG, TID
     Dates: start: 20121018, end: 20140918
  4. FRAXIPARINE [Concomitant]
     Active Substance: NADROPARIN CALCIUM
     Dosage: 0.3 ML, QD
     Dates: start: 20140918

REACTIONS (3)
  - Helicobacter infection [Unknown]
  - Upper respiratory tract infection [Unknown]
  - Platelet count increased [Recovered/Resolved]

NARRATIVE: CASE EVENT DATE: 201408
